FAERS Safety Report 8478024-7 (Version None)
Quarter: 2012Q2

REPORT INFORMATION
  Report Type: 
  Country: None (occurrence: None)
  Receive Date: 20120629
  Receipt Date: 20120621
  Transmission Date: 20120825
  Serious: Yes (Hospitalization)
  Sender: FDA-Public Use
  Company Number: ES-UCBSA-060301

PATIENT
  Age: 79 Year
  Sex: Female

DRUGS (7)
  1. NIFEDIPINE [Concomitant]
  2. METAMIZOLE [Concomitant]
  3. SIMVASTATIN [Concomitant]
  4. PROFER [Concomitant]
     Dosage: 40 MG
  5. CIMZIA [Suspect]
     Indication: RHEUMATOID ARTHRITIS
     Route: 058
     Dates: start: 20120411
  6. CALCIUM SANDOZ [Concomitant]
     Dosage: 500 MG
  7. ZAMENE [Concomitant]
     Dosage: 6 MG

REACTIONS (2)
  - PANCREATIC DISORDER [None]
  - ABDOMINAL PAIN UPPER [None]
